FAERS Safety Report 7415390-5 (Version None)
Quarter: 2011Q2

REPORT INFORMATION
  Report Type: 
  Country: None (occurrence: None)
  Receive Date: 20110414
  Receipt Date: 20110407
  Transmission Date: 20111010
  Serious: Yes (Death)
  Sender: FDA-Public Use
  Company Number: B0711986A

PATIENT
  Sex: Female
  Weight: 51 kg

DRUGS (16)
  1. GASTER D [Concomitant]
     Dosage: 20MG PER DAY
     Route: 048
     Dates: end: 20070329
  2. MEROPEN [Concomitant]
     Dosage: 1.5G PER DAY
     Route: 042
     Dates: start: 20070313, end: 20070328
  3. SAXIZON [Concomitant]
     Dosage: 500MG PER DAY
     Route: 042
     Dates: start: 20070313, end: 20070324
  4. ANTI-HUMAN THYMOCYTE IMMUNOGLOBULIN, EQUINE [Suspect]
     Indication: CORD BLOOD TRANSPLANT THERAPY
     Dosage: 10MGK PER DAY
     Route: 042
     Dates: start: 20070313, end: 20070313
  5. URSO 250 [Concomitant]
     Dosage: 900MG PER DAY
     Route: 048
     Dates: end: 20070329
  6. CIPROFLOXACIN HCL [Concomitant]
     Dosage: 600MG PER DAY
     Route: 048
     Dates: end: 20070320
  7. FUROSEMIDE [Concomitant]
     Dosage: 160MG PER DAY
     Route: 042
     Dates: end: 20070325
  8. ALKERAN [Suspect]
     Indication: CORD BLOOD TRANSPLANT THERAPY
     Dosage: 80MGM2 PER DAY
     Route: 042
     Dates: start: 20070313, end: 20070313
  9. MYSLEE [Concomitant]
     Dosage: 5MG PER DAY
     Route: 048
     Dates: end: 20070329
  10. SOL-MELCORT [Concomitant]
     Dosage: 125MG PER DAY
     Route: 042
     Dates: start: 20070313, end: 20070328
  11. ZOVIRAX [Concomitant]
     Dosage: 1000MG PER DAY
     Route: 048
     Dates: end: 20070328
  12. RAMELTEON [Concomitant]
     Dosage: .3MG PER DAY
     Route: 042
     Dates: end: 20070314
  13. FLUDARA [Suspect]
     Indication: CORD BLOOD TRANSPLANT THERAPY
     Dosage: 30MGM2 PER DAY
     Route: 042
     Dates: start: 20070309, end: 20070312
  14. VFEND [Concomitant]
     Dosage: 800MG PER DAY
     Route: 048
     Dates: end: 20070329
  15. PROGRAF [Suspect]
     Indication: IMMUNOSUPPRESSION
     Dosage: 1MG PER DAY
     Route: 065
     Dates: start: 20070313, end: 20070326
  16. BAKTAR [Concomitant]
     Dosage: 4IUAX PER DAY
     Route: 048
     Dates: end: 20070313

REACTIONS (1)
  - PULMONARY HAEMORRHAGE [None]
